FAERS Safety Report 13670949 (Version 1)
Quarter: 2017Q2

REPORT INFORMATION
  Report Type: Spontaneous
  Country: US (occurrence: US)
  Receive Date: 20170620
  Receipt Date: 20170620
  Transmission Date: 20170830
  Serious: Yes (Other)
  Sender: FDA-Public Use
  Company Number: US-ROCHE-1075310

PATIENT
  Sex: Male

DRUGS (2)
  1. XELODA [Suspect]
     Active Substance: CAPECITABINE
     Indication: COLON CANCER
     Dosage: TDD: 2000 MG AM AND 2500 MG PM
     Route: 065
     Dates: start: 20120510
  2. XELODA [Suspect]
     Active Substance: CAPECITABINE
     Dosage: TDD: 2000 MG AM AND 2500 MG PM
     Route: 048
     Dates: start: 20120603

REACTIONS (1)
  - Loss of consciousness [Unknown]
